FAERS Safety Report 15041529 (Version 1)
Quarter: 2018Q2

REPORT INFORMATION
  Report Type: Report from Study
  Country: DE (occurrence: DE)
  Receive Date: 20180621
  Receipt Date: 20180621
  Transmission Date: 20180711
  Serious: Yes (Other)
  Sender: FDA-Public Use
  Company Number: DE-ADIENNEP-2018AD000336

PATIENT
  Sex: Male
  Weight: 93 kg

DRUGS (2)
  1. CARMUSTINE [Concomitant]
     Active Substance: CARMUSTINE
     Indication: CHEMOTHERAPY
     Dosage: 400 MG/M2
  2. TEPADINA [Suspect]
     Active Substance: THIOTEPA
     Indication: CENTRAL NERVOUS SYSTEM LYMPHOMA
     Dosage: 4 DOSAGES 5 MG/M2 DAILY
     Route: 042
     Dates: start: 20160219

REACTIONS (16)
  - Blood bilirubin increased [Unknown]
  - Thrombocytopenia [Recovered/Resolved]
  - Pyrexia [Recovered/Resolved]
  - Diarrhoea [Recovered/Resolved]
  - Acute kidney injury [Recovered/Resolved]
  - Anaemia [Recovered/Resolved]
  - Herpes simplex [Recovered/Resolved]
  - Blood creatinine increased [Recovered/Resolved]
  - Leukopenia [Recovered/Resolved]
  - Neutropenia [Recovered/Resolved]
  - Hypotension [Recovered/Resolved]
  - Mucosal inflammation [Recovered/Resolved]
  - Anaemia [Recovered/Resolved]
  - Thrombocytopenia [Recovered/Resolved]
  - Leukopenia [Recovered/Resolved]
  - Pain [Recovered/Resolved]

NARRATIVE: CASE EVENT DATE: 20160223
